FAERS Safety Report 25682971 (Version 1)
Quarter: 2025Q3

REPORT INFORMATION
  Report Type: Spontaneous
  Country: US (occurrence: US)
  Receive Date: 20250814
  Receipt Date: 20250814
  Transmission Date: 20251021
  Serious: No
  Sender: MYLAN
  Company Number: US-MYLANLABS-2025M1068644

PATIENT
  Sex: Female
  Weight: 69.4 kg

DRUGS (5)
  1. XULANE [Suspect]
     Active Substance: ETHINYL ESTRADIOL\NORELGESTROMIN
     Indication: Premenstrual dysphoric disorder
  2. XULANE [Suspect]
     Active Substance: ETHINYL ESTRADIOL\NORELGESTROMIN
     Indication: Contraception
  3. PAMPRIN [Concomitant]
     Active Substance: IBUPROFEN
     Indication: Pain management
  4. ALEVE [Concomitant]
     Active Substance: NAPROXEN SODIUM
     Indication: Pain management
  5. ADVIL [Concomitant]
     Active Substance: IBUPROFEN
     Indication: Pain management

REACTIONS (5)
  - Dysmenorrhoea [Unknown]
  - Menstrual disorder [Unknown]
  - Wrong technique in product usage process [Unknown]
  - Product administered at inappropriate site [Unknown]
  - Product adhesion issue [Unknown]

NARRATIVE: CASE EVENT DATE: 20250101
